FAERS Safety Report 8565341 (Version 3)
Quarter: 2013Q1

REPORT INFORMATION
  Report Type: Report from Study
  Country: FR (occurrence: FR)
  Receive Date: 20120516
  Receipt Date: 20130212
  Transmission Date: 20140127
  Serious: Yes (Hospitalization)
  Sender: FDA-Public Use
  Company Number: FR-ROCHE-1069172

PATIENT
  Age: 58 Year
  Sex: Female
  Weight: 74 kg

DRUGS (1)
  1. ROACTEMRA [Suspect]
     Indication: RHEUMATOID ARTHRITIS
     Route: 042
     Dates: start: 201201, end: 201203

REACTIONS (1)
  - Colitis ischaemic [Recovered/Resolved]
